FAERS Safety Report 21881470 (Version 2)
Quarter: 2023Q1

REPORT INFORMATION
  Report Type: Report from Study
  Country: IE (occurrence: IE)
  Receive Date: 20230119
  Receipt Date: 20230209
  Transmission Date: 20230418
  Serious: Yes (Hospitalization)
  Sender: FDA-Public Use
  Company Number: IE-AstraZeneca-2022A357018

PATIENT
  Age: 0 Year
  Sex: Male

DRUGS (4)
  1. SYNAGIS [Suspect]
     Active Substance: PALIVIZUMAB
     Indication: Premature baby
     Dates: start: 20221020
  2. SYNAGIS [Suspect]
     Active Substance: PALIVIZUMAB
     Dates: start: 20221117
  3. SYNAGIS [Suspect]
     Active Substance: PALIVIZUMAB
     Dates: start: 20221215
  4. SYNAGIS [Suspect]
     Active Substance: PALIVIZUMAB
     Dates: start: 20221215

REACTIONS (12)
  - Lethargy [Not Recovered/Not Resolved]
  - Influenza [Not Recovered/Not Resolved]
  - Hypophagia [Not Recovered/Not Resolved]
  - Pyrexia [Not Recovered/Not Resolved]
  - Bronchiolitis [Unknown]
  - Respiratory syncytial virus infection [Unknown]
  - Malaise [Not Recovered/Not Resolved]
  - Vomiting [Not Recovered/Not Resolved]
  - Cough [Not Recovered/Not Resolved]
  - Constipation [Not Recovered/Not Resolved]
  - Off label use [Unknown]
  - Inappropriate schedule of product administration [Unknown]

NARRATIVE: CASE EVENT DATE: 20221020
